FAERS Safety Report 9153450 (Version 1)
Quarter: 2013Q1

REPORT INFORMATION
  Report Type: Spontaneous
  Country: US (occurrence: None)
  Receive Date: 20130306
  Receipt Date: 20130306
  Transmission Date: 20140127
  Serious: Yes (Other)
  Sender: FDA-Public Use
  Company Number: None

PATIENT
  Age: 39 Year
  Sex: Female
  Weight: 74.84 kg

DRUGS (2)
  1. PROVENTIL HFA [Suspect]
     Indication: INFLUENZA LIKE ILLNESS
     Dosage: 2 X 90MCG -30 SECONDS APART- MIN EVERY 4 HOURS PO
     Dates: start: 20130226, end: 20130228
  2. NEXIUM [Concomitant]

REACTIONS (10)
  - Nausea [None]
  - Nervousness [None]
  - Paraesthesia [None]
  - Burning sensation [None]
  - Scratch [None]
  - Urticaria [None]
  - Scar [None]
  - Initial insomnia [None]
  - Unevaluable event [None]
  - Pruritus [None]
